FAERS Safety Report 8469577-3 (Version None)
Quarter: 2012Q2

REPORT INFORMATION
  Report Type: 
  Country: None (occurrence: None)
  Receive Date: 20120626
  Receipt Date: 20120618
  Transmission Date: 20120825
  Serious: Yes (Hospitalization)
  Sender: FDA-Public Use
  Company Number: DE-JNJFOC-20120411824

PATIENT
  Sex: Female
  Weight: 58 kg

DRUGS (8)
  1. METOPROLOL TARTRATE [Concomitant]
     Indication: HYPERTENSION
     Dates: start: 20120110
  2. XARELTO [Suspect]
     Indication: ATRIAL FIBRILLATION
     Route: 048
     Dates: start: 20120110, end: 20120120
  3. BENALAPRIL [Concomitant]
     Indication: HYPERTENSION
     Dates: start: 20120110
  4. AMLODIPINE [Concomitant]
     Indication: HYPERTENSION
     Dates: start: 20120110
  5. XARELTO [Suspect]
     Indication: CEREBROVASCULAR ACCIDENT PROPHYLAXIS
     Route: 048
     Dates: start: 20120110, end: 20120120
  6. MARCUMAR [Suspect]
     Indication: ATRIAL FIBRILLATION
     Dates: end: 20120101
  7. TORSEMIDE [Concomitant]
     Indication: CARDIAC FAILURE
     Dates: start: 20120110
  8. ALLOPURINOL [Concomitant]
     Indication: GOUT
     Dates: start: 20120110

REACTIONS (3)
  - OEDEMA PERIPHERAL [None]
  - GASTRIC HAEMORRHAGE [None]
  - FACE OEDEMA [None]
